FAERS Safety Report 17734499 (Version 2)
Quarter: 2020Q2

REPORT INFORMATION
  Report Type: Spontaneous
  Country: US (occurrence: US)
  Receive Date: 20200501
  Receipt Date: 20200508
  Transmission Date: 20200714
  Serious: Yes (Other)
  Sender: FDA-Public Use
  Company Number: NVSC2020US116408

PATIENT
  Age: 83 Year
  Sex: Female

DRUGS (1)
  1. BEOVU [Suspect]
     Active Substance: BROLUCIZUMAB-DBLL
     Indication: AGE-RELATED MACULAR DEGENERATION
     Dosage: 6 MG, QD
     Route: 031
     Dates: start: 20200120, end: 20200217

REACTIONS (4)
  - Uveitis [Recovered/Resolved]
  - Anterior chamber cell [Unknown]
  - Vitreous floaters [Unknown]
  - Eye inflammation [Unknown]

NARRATIVE: CASE EVENT DATE: 20200229
